FAERS Safety Report 13888831 (Version 2)
Quarter: 2017Q3

REPORT INFORMATION
  Report Type: Report from Study
  Country: JP (occurrence: JP)
  Receive Date: 20170821
  Receipt Date: 20170908
  Transmission Date: 20171127
  Serious: Yes (Death, Other)
  Sender: FDA-Public Use
  Company Number: JP-BRISTOL-MYERS SQUIBB COMPANY-BMS-2017-074862

PATIENT
  Age: 77 Year
  Sex: Male
  Weight: 54 kg

DRUGS (1)
  1. IPILIMUMAB [Suspect]
     Active Substance: IPILIMUMAB
     Indication: MALIGNANT MELANOMA
     Dosage: 180 MG, UNK
     Route: 065
     Dates: start: 20170210, end: 20170327

REACTIONS (1)
  - Malignant neoplasm progression [Fatal]
